FAERS Safety Report 7285523-2 (Version None)
Quarter: 2011Q1

REPORT INFORMATION
  Report Type: 
  Country: None (occurrence: None)
  Receive Date: 20110210
  Receipt Date: 20110131
  Transmission Date: 20110831
  Serious: Yes (Hospitalization)
  Sender: FDA-Public Use
  Company Number: US-ELI_LILLY_AND_COMPANY-US201007000605

PATIENT
  Sex: Female
  Weight: 67.12 kg

DRUGS (20)
  1. CARBOPLATIN [Suspect]
     Indication: NON-SMALL CELL LUNG CANCER STAGE IV
     Dosage: 6 D/F, OTHER
     Route: 042
     Dates: start: 20100513, end: 20100603
  2. OXYCONTIN [Concomitant]
     Indication: PAIN
     Dosage: 20 MG, 2/D
     Dates: start: 20100628
  3. OXYCODONE [Concomitant]
     Indication: PAIN
     Dosage: 5 MG, EVERY 4 HRS AS NEEDED
  4. ZOLOFT [Concomitant]
     Indication: ANXIETY
     Dosage: 50 MG, DAILY (1/D)
  5. COLACE [Concomitant]
     Indication: CONSTIPATION
     Dosage: 100 MG, 2/D
     Dates: start: 20100520
  6. CALCIUM WITH VITAMIN D [Concomitant]
     Indication: OSTEOPOROSIS
     Dosage: 1200 MG, DAILY (1/D)
     Dates: start: 20100503
  7. PROCARDIA [Concomitant]
     Indication: HYPERTENSION
     Dosage: 60 MG, DAILY (1/D)
     Dates: start: 20100503
  8. VITAMIN B-12 [Concomitant]
     Indication: SUPPLEMENTATION THERAPY
     Dates: start: 20100422
  9. FISH OIL [Concomitant]
     Indication: SUPPLEMENTATION THERAPY
  10. FOLIC ACID [Concomitant]
     Indication: SUPPLEMENTATION THERAPY
     Dosage: 1 MG, 2/D
     Dates: start: 20100427
  11. SENOKOT [Concomitant]
     Indication: CONSTIPATION
     Dosage: UNK, 2/D
  12. PEMETREXED [Suspect]
     Indication: NON-SMALL CELL LUNG CANCER STAGE IV
     Dosage: 500 MG/M2, OTHER
     Route: 042
     Dates: start: 20100513, end: 20100603
  13. PROTONIX [Concomitant]
     Indication: GASTROOESOPHAGEAL REFLUX DISEASE
  14. COUMADIN [Concomitant]
     Indication: DEEP VEIN THROMBOSIS
     Dosage: 5 MG, DAILY (1/D)
     Route: 048
  15. METOPROLOL [Concomitant]
     Indication: HYPERTENSION
     Dates: end: 20100701
  16. OMEPRAZOLE [Concomitant]
     Indication: GASTROOESOPHAGEAL REFLUX DISEASE
     Dosage: 20 MG, DAILY (1/D)
  17. CIPRO [Concomitant]
  18. BEVACIZUMAB [Suspect]
     Indication: NON-SMALL CELL LUNG CANCER STAGE IV
     Dosage: 15 MG/KG, OTHER
     Route: 042
     Dates: start: 20100513, end: 20100603
  19. DEXAMETHASONE [Concomitant]
     Indication: LUNG NEOPLASM MALIGNANT
     Dosage: 6 MG, 2/D
     Dates: start: 20100501
  20. LIPITOR [Concomitant]
     Indication: HYPERLIPIDAEMIA
     Dosage: 10 MG, DAILY (1/D)
     Dates: start: 20100503

REACTIONS (3)
  - DYSPNOEA [None]
  - DEEP VEIN THROMBOSIS [None]
  - RENAL FAILURE ACUTE [None]
